FAERS Safety Report 4721727-8 (Version None)
Quarter: 2005Q3

REPORT INFORMATION
  Report Type: 
  Country: None (occurrence: None)
  Receive Date: 20050721
  Receipt Date: 20050318
  Transmission Date: 20060218
  Serious: No
  Sender: FDA-Public Use
  Company Number: US-BRISTOL-MYERS SQUIBB COMPANY-12902904

PATIENT
  Age: 70 Year
  Sex: Female

DRUGS (4)
  1. COUMADIN [Suspect]
     Dosage: 7 MG ON MONDAY AND WEDNESDAY, 5 MG ON THE REMAINING 5 DAYS OF THE WEEK.
     Dates: start: 20000101
  2. LISINOPRIL [Concomitant]
  3. PEPCID [Concomitant]
  4. MULTI-VITAMIN [Concomitant]

REACTIONS (1)
  - INTERNATIONAL NORMALISED RATIO INCREASED [None]
